FAERS Safety Report 4322167-6 (Version None)
Quarter: 2004Q1

REPORT INFORMATION
  Report Type: 
  Country: None (occurrence: None)
  Receive Date: 20040319
  Receipt Date: 20040312
  Transmission Date: 20041129
  Serious: Yes (Hospitalization)
  Sender: FDA-Public Use
  Company Number: 200410785GDS

PATIENT
  Age: 87 Year
  Sex: Female

DRUGS (14)
  1. CIPROFLOXACIN [Suspect]
     Indication: URINARY TRACT INFECTION
     Dosage: 500 MG, TOTAL DAILY, ORAL
     Route: 048
     Dates: start: 20021206
  2. FLUOXETINE [Suspect]
     Indication: DEPRESSION
     Dosage: 20 MG, TOTAL DAILY, 10 MG, TOTAL DAILY
     Dates: end: 20021213
  3. FLUOXETINE [Suspect]
     Indication: DEPRESSION
     Dosage: 20 MG, TOTAL DAILY, 10 MG, TOTAL DAILY
     Dates: start: 20021011
  4. WARFARIN SODIUM [Concomitant]
  5. ISOSORBIDE DINITRATE [Concomitant]
  6. SPIRONOLACTONE [Concomitant]
  7. DIGOXIN [Concomitant]
  8. FUROSEMIDE [Concomitant]
  9. RABEPRAZOLE SODIUM [Concomitant]
  10. LORATADINE [Concomitant]
  11. FLUTICASONE PROPIONATE [Concomitant]
  12. TRIAMCINOLONE [Concomitant]
  13. ALBUTEROL [Concomitant]
  14. ENALAPRIL MALEATE [Concomitant]

REACTIONS (7)
  - AMNESIA [None]
  - BLOOD SODIUM DECREASED [None]
  - BRAIN SCAN ABNORMAL [None]
  - COGNITIVE DISORDER [None]
  - DISORIENTATION [None]
  - FULL BLOOD COUNT ABNORMAL [None]
  - URINARY TRACT INFECTION [None]
